FAERS Safety Report 5981519-9 (Version None)
Quarter: 2008Q4

REPORT INFORMATION
  Report Type: 
  Country: None (occurrence: None)
  Receive Date: 20081202
  Receipt Date: 20081117
  Transmission Date: 20090506
  Serious: Yes (Hospitalization)
  Sender: FDA-Public Use
  Company Number: KV200800293

PATIENT
  Age: 65 Year
  Sex: Female

DRUGS (6)
  1. PROPAFENONE HCL [Suspect]
     Indication: TACHYCARDIA
     Dosage: 225 MG, BID, ORAL
     Route: 048
     Dates: start: 20080527, end: 20080713
  2. SYNTHROID [Concomitant]
  3. RYTHMOL [Concomitant]
  4. ACTONEL [Concomitant]
  5. VAGIFEM [Concomitant]
  6. ASPIRIN [Concomitant]

REACTIONS (4)
  - CONDITION AGGRAVATED [None]
  - HEADACHE [None]
  - PRODUCT QUALITY ISSUE [None]
  - TACHYCARDIA [None]
